FAERS Safety Report 17532759 (Version 3)
Quarter: 2020Q2

REPORT INFORMATION
  Report Type: Spontaneous
  Country: US (occurrence: US)
  Receive Date: 20200312
  Receipt Date: 20200610
  Transmission Date: 20200713
  Serious: No
  Sender: FDA-Public Use
  Company Number: US-PFIZER INC-2020106779

PATIENT
  Age: 48 Year
  Sex: Female

DRUGS (2)
  1. XELJANZ XR [Suspect]
     Active Substance: TOFACITINIB CITRATE
     Indication: RHEUMATOID ARTHRITIS
     Dosage: 11 MG, DAILY
     Route: 048
     Dates: start: 2018
  2. XELJANZ XR [Suspect]
     Active Substance: TOFACITINIB CITRATE
     Dosage: 11 MG, DAILY
     Route: 048
     Dates: start: 202003, end: 2020

REACTIONS (14)
  - Fatigue [Unknown]
  - Cough [Unknown]
  - Rash [Unknown]
  - Dyspnoea [Unknown]
  - Condition aggravated [Unknown]
  - Headache [Unknown]
  - Protein total increased [Unknown]
  - Pain [Unknown]
  - Drug ineffective [Unknown]
  - Liver function test increased [Unknown]
  - Body temperature decreased [Unknown]
  - Rheumatoid factor increased [Unknown]
  - Viral infection [Unknown]
  - Malaise [Unknown]
